FAERS Safety Report 22102935 (Version 1)
Quarter: 2023Q1

REPORT INFORMATION
  Report Type: Spontaneous
  Country: US (occurrence: US)
  Receive Date: 20230316
  Receipt Date: 20230316
  Transmission Date: 20230417
  Serious: No
  Sender: FDA-Public Use
  Company Number: US-MYLANLABS-2023M1025179

PATIENT
  Age: 20 Year
  Sex: Female

DRUGS (1)
  1. ESTRADIOL TRANSDERMAL SYSTEM [Suspect]
     Active Substance: ESTRADIOL
     Indication: Product used for unknown indication
     Dosage: 0.1 MILLIGRAM, QD (TWICE WEEKLY)
     Route: 062

REACTIONS (2)
  - Wrong technique in product usage process [Unknown]
  - Product quality issue [Unknown]

NARRATIVE: CASE EVENT DATE: 20230306
